FAERS Safety Report 10303507 (Version 2)
Quarter: 2014Q3

REPORT INFORMATION
  Report Type: Report from Study
  Country: BR (occurrence: BR)
  Receive Date: 20140714
  Receipt Date: 20140922
  Transmission Date: 20150326
  Serious: Yes (Disabling, Other)
  Sender: FDA-Public Use
  Company Number: BR-ABBVIE-14P-020-1257973-00

PATIENT
  Sex: Male
  Weight: 68 kg

DRUGS (17)
  1. LYSINE [Concomitant]
     Active Substance: LYSINE
     Indication: RHEUMATOID ARTHRITIS
     Route: 048
     Dates: start: 2012, end: 20140829
  2. KETOPROFEN. [Concomitant]
     Active Substance: KETOPROFEN
     Indication: RHEUMATOID ARTHRITIS
     Route: 048
     Dates: start: 1983
  3. FOLIC ACID. [Concomitant]
     Active Substance: FOLIC ACID
     Indication: PROPHYLAXIS
     Route: 048
     Dates: start: 2012, end: 20140829
  4. METOTREXATE [Concomitant]
     Active Substance: METHOTREXATE SODIUM
     Indication: RHEUMATOID ARTHRITIS
     Route: 048
     Dates: start: 1970
  5. HUMIRA [Suspect]
     Active Substance: ADALIMUMAB
     Indication: RHEUMATOID ARTHRITIS
     Route: 058
     Dates: start: 20040701
  6. PANTOPRAZOLE [Concomitant]
     Active Substance: PANTOPRAZOLE SODIUM
     Indication: GASTRIC DISORDER
     Route: 048
     Dates: start: 2009
  7. DEFLAZACORT [Concomitant]
     Active Substance: DEFLAZACORT
     Route: 048
     Dates: start: 2012, end: 20140829
  8. PARACETAMOL [Concomitant]
     Active Substance: ACETAMINOPHEN
     Indication: PAIN
     Route: 048
     Dates: start: 2010
  9. FOLIC ACID. [Concomitant]
     Active Substance: FOLIC ACID
     Indication: RHEUMATOID ARTHRITIS
     Route: 048
     Dates: start: 1970
  10. FOLIC ACID. [Concomitant]
     Active Substance: FOLIC ACID
     Indication: LIVER DISORDER
  11. FAMOTIDINE. [Concomitant]
     Active Substance: FAMOTIDINE
     Route: 048
     Dates: start: 2012, end: 20140829
  12. DEFLAZACORT [Concomitant]
     Active Substance: DEFLAZACORT
     Indication: RHEUMATOID ARTHRITIS
     Route: 048
     Dates: start: 1983
  13. ACLASTA [Concomitant]
     Active Substance: ZOLEDRONIC ACID
     Indication: RHEUMATOID ARTHRITIS
     Route: 042
     Dates: start: 2012
  14. PIROXICAM. [Concomitant]
     Active Substance: PIROXICAM
     Indication: RHEUMATOID ARTHRITIS
     Route: 048
     Dates: start: 2012, end: 20140829
  15. OMEPRAZOLE. [Concomitant]
     Active Substance: OMEPRAZOLE
     Indication: GASTRIC DISORDER
     Dates: end: 2009
  16. FAMOTIDINE. [Concomitant]
     Active Substance: FAMOTIDINE
     Indication: RHEUMATOID ARTHRITIS
     Route: 048
     Dates: start: 1983
  17. METOTREXATE [Concomitant]
     Active Substance: METHOTREXATE SODIUM
     Dates: end: 20140829

REACTIONS (20)
  - Chondropathy [Recovered/Resolved]
  - Joint contracture [Not Recovered/Not Resolved]
  - Transplant rejection [Unknown]
  - Anaemia [Unknown]
  - Spinal pain [Not Recovered/Not Resolved]
  - Osteoarthritis [Recovered/Resolved]
  - Patient-device incompatibility [Unknown]
  - Intervertebral disc protrusion [Recovering/Resolving]
  - Hypertension [Recovered/Resolved]
  - Post procedural infection [Recovered/Resolved]
  - Post procedural discharge [Recovered/Resolved]
  - Localised infection [Unknown]
  - Joint range of motion decreased [Unknown]
  - Spinal osteoarthritis [Unknown]
  - Blood cholesterol increased [Recovered/Resolved]
  - Fall [Recovered/Resolved]
  - Limb deformity [Unknown]
  - Upper limb fracture [Recovered/Resolved]
  - Mobility decreased [Not Recovered/Not Resolved]
  - Arthralgia [Not Recovered/Not Resolved]

NARRATIVE: CASE EVENT DATE: 2004
